FAERS Safety Report 23680638 (Version 1)
Quarter: 2024Q1

REPORT INFORMATION
  Report Type: Spontaneous
  Country: AU (occurrence: AU)
  Receive Date: 20240328
  Receipt Date: 20240328
  Transmission Date: 20240409
  Serious: Yes (Other)
  Sender: FDA-Public Use
  Company Number: AU-ALKEM LABORATORIES LIMITED-AU-ALKEM-2024-05029

PATIENT
  Age: 37 Year
  Sex: Female

DRUGS (1)
  1. DIMETHYL FUMARATE [Suspect]
     Active Substance: DIMETHYL FUMARATE
     Indication: Product used for unknown indication
     Dosage: UNK
     Route: 065

REACTIONS (6)
  - Hemiparesis [Unknown]
  - Tumefactive multiple sclerosis [Unknown]
  - Progressive multifocal leukoencephalopathy [Unknown]
  - Aphasia [Unknown]
  - Neoplasm [Unknown]
  - Abscess [Unknown]
